FAERS Safety Report 20622989 (Version 1)
Quarter: 2022Q1

REPORT INFORMATION
  Report Type: Spontaneous
  Country: US (occurrence: US)
  Receive Date: 20220322
  Receipt Date: 20220322
  Transmission Date: 20220423
  Serious: No
  Sender: FDA-Public Use
  Company Number: US-MYLANLABS-2022M1019214

PATIENT
  Age: 65 Year
  Sex: Female
  Weight: 80.29 kg

DRUGS (1)
  1. SEMGLEE [Suspect]
     Active Substance: INSULIN GLARGINE
     Indication: Diabetes mellitus
     Dosage: 3000 INTERNATIONAL UNIT, PM
     Route: 058
     Dates: start: 20220301

REACTIONS (2)
  - Blood glucose increased [Recovered/Resolved]
  - Device issue [Not Recovered/Not Resolved]

NARRATIVE: CASE EVENT DATE: 20220308
